APPROVED DRUG PRODUCT: DUTASTERIDE
Active Ingredient: DUTASTERIDE
Strength: 0.5MG
Dosage Form/Route: CAPSULE;ORAL
Application: A202530 | Product #001
Applicant: RISING PHARMA HOLDINGS INC
Approved: Nov 20, 2015 | RLD: No | RS: No | Type: DISCN